FAERS Safety Report 9444910 (Version 1)
Quarter: 2013Q3

REPORT INFORMATION
  Report Type: Spontaneous
  Country: DE (occurrence: None)
  Receive Date: 20130806
  Receipt Date: 20130806
  Transmission Date: 20140515
  Serious: Yes (Death, Hospitalization)
  Sender: FDA-Public Use
  Company Number: 2013036969

PATIENT
  Age: 79 Year
  Sex: Male

DRUGS (8)
  1. PRIVIGEN [Suspect]
     Indication: CHRONIC LYMPHOCYTIC LEUKAEMIA
     Dosage: 10 %, 20 G TOTAL, INFUSION RATE: 1.25 TO 9 ML/MIN
     Route: 042
     Dates: start: 20130409, end: 20130312
  2. COAPROVEL [Concomitant]
  3. TORASEMIDE [Concomitant]
  4. IRBESARTAN [Concomitant]
  5. ENOXAPARIN [Concomitant]
  6. TILIDIN [Concomitant]
  7. PANTOPRAZOLE [Concomitant]
  8. ALLOPURINOL [Concomitant]

REACTIONS (2)
  - Hospitalisation [None]
  - Death [None]
